FAERS Safety Report 5028009-8 (Version None)
Quarter: 2006Q2

REPORT INFORMATION
  Report Type: 
  Country: None (occurrence: None)
  Receive Date: 20060616
  Receipt Date: 20060315
  Transmission Date: 20061013
  Serious: Yes (Death, Hospitalization)
  Sender: FDA-Public Use
  Company Number: JP-SANOFI-SYNTHELABO-A01200602228

PATIENT
  Sex: Male
  Weight: 54 kg

DRUGS (3)
  1. CALCIUM LEVOFOLINATE [Suspect]
     Indication: RECTAL CANCER
     Route: 042
     Dates: start: 20060219, end: 20060219
  2. OXALIPLATIN [Suspect]
     Indication: RECTAL CANCER
     Route: 042
     Dates: start: 20060218, end: 20060218
  3. FLUOROURACIL [Suspect]
     Indication: RECTAL CANCER
     Dosage: UNK
     Route: 042
     Dates: start: 20060219, end: 20060220

REACTIONS (1)
  - PULMONARY TUBERCULOSIS [None]
